FAERS Safety Report 6309820-X (Version None)
Quarter: 2009Q3

REPORT INFORMATION
  Report Type: 
  Country: None (occurrence: None)
  Receive Date: 20090814
  Receipt Date: 20090806
  Transmission Date: 20100115
  Serious: Yes (Hospitalization)
  Sender: FDA-Public Use
  Company Number: BR-PFIZER INC-2009212509

PATIENT
  Age: 57 Year

DRUGS (16)
  1. NAPROXEN [Suspect]
     Dosage: UNK
     Route: 048
     Dates: start: 20071020, end: 20090512
  2. BLINDED *NO SUBJECT DRUG [Suspect]
     Dosage: UNK
     Route: 048
     Dates: start: 20071020, end: 20090512
  3. BLINDED *PLACEBO [Suspect]
     Dosage: UNK
     Route: 048
     Dates: start: 20071020, end: 20090512
  4. BLINDED CELECOXIB [Suspect]
     Dosage: UNK
     Route: 048
     Dates: start: 20071020, end: 20090512
  5. IBUPROFEN [Suspect]
     Dosage: UNK
     Route: 048
     Dates: start: 20071020, end: 20090512
  6. NAPROXEN [Suspect]
     Dosage: UNK
     Route: 048
     Dates: start: 20071020, end: 20090512
  7. ESOMEPRAZOLE [Concomitant]
     Dosage: UNK
     Route: 048
     Dates: start: 20071020, end: 20090512
  8. CLONAZEPAM [Concomitant]
     Dosage: UNK
     Route: 048
     Dates: start: 20080816, end: 20090512
  9. VERAPAMIL [Concomitant]
     Dosage: UNK
     Route: 048
     Dates: start: 20061001, end: 20090505
  10. LEVOTHYROXINE [Concomitant]
     Dosage: UNK
     Route: 048
     Dates: start: 20050901
  11. SIBUTRAMINE [Concomitant]
     Dosage: UNK
     Route: 048
     Dates: start: 20080417, end: 20090505
  12. AMIODARONE [Concomitant]
     Dosage: UNK
     Route: 048
     Dates: start: 20090505, end: 20090512
  13. ENALAPRIL [Concomitant]
     Dosage: UNK
     Route: 048
     Dates: start: 20090505
  14. AAS [Concomitant]
     Dosage: UNK
     Route: 048
     Dates: start: 20090505
  15. ASPIRIN [Concomitant]
     Dosage: UNK
     Route: 048
     Dates: start: 20090505
  16. PAROXETINE [Concomitant]
     Dosage: UNK
     Route: 048
     Dates: start: 20090513

REACTIONS (1)
  - PULMONARY HYPERTENSION [None]
